FAERS Safety Report 7232034-6 (Version None)
Quarter: 2011Q1

REPORT INFORMATION
  Report Type: 
  Country: None (occurrence: None)
  Receive Date: 20110118
  Receipt Date: 20061005
  Transmission Date: 20110831
  Serious: Yes (Other)
  Sender: FDA-Public Use
  Company Number: PHHY2006ES02765

PATIENT
  Age: 55 Year
  Sex: Male

DRUGS (5)
  1. TOBI [Suspect]
     Indication: PSEUDOMONAS INFECTION
  2. MYCOPHENOLIC ACID [Concomitant]
  3. TOBI [Suspect]
     Indication: BRONCHITIS
  4. TACROLIMUS [Concomitant]
  5. STEROIDS NOS [Concomitant]

REACTIONS (2)
  - BLOOD POTASSIUM INCREASED [None]
  - BLOOD CREATININE INCREASED [None]
